FAERS Safety Report 6379657-4 (Version None)
Quarter: 2009Q3

REPORT INFORMATION
  Report Type: 
  Country: None (occurrence: None)
  Receive Date: 20090923
  Receipt Date: 20090910
  Transmission Date: 20100115
  Serious: Yes (Death, Other)
  Sender: FDA-Public Use
  Company Number: 2009AL002790

PATIENT
  Age: 61 Year
  Sex: Male

DRUGS (11)
  1. DIGOXIN [Suspect]
     Dosage: 0.25MG, DAILY, PO
     Route: 048
     Dates: start: 19970101, end: 20081117
  2. CARVEDILOL [Concomitant]
  3. WARFARIN [Concomitant]
  4. HYDROCHLOROT [Concomitant]
  5. ENALAPRIL MALEATE [Concomitant]
  6. ALLOPURINOL [Concomitant]
  7. HYDROCODONE BITARTRATE AND ACETAMINOPHEN [Concomitant]
  8. CEFADROXIL [Concomitant]
  9. TRAMADOL HCL [Concomitant]
  10. LEVOPHED [Concomitant]
  11. DOPAMIDE [Concomitant]

REACTIONS (7)
  - ATRIAL FIBRILLATION [None]
  - BLOOD POTASSIUM INCREASED [None]
  - CARDIAC ARREST [None]
  - ECONOMIC PROBLEM [None]
  - INJURY [None]
  - PRESYNCOPE [None]
  - SURGERY [None]
